FAERS Safety Report 8796220 (Version 1)
Quarter: 2012Q4

REPORT INFORMATION
  Report Type: 
  Country: NL (occurrence: NL)
  Receive Date: 20120920
  Receipt Date: 20120920
  Transmission Date: 20130627
  Serious: Yes (Other)
  Sender: FDA-Public Use
  Company Number: NL-PFIZER INC-2012229059

PATIENT
  Age: 57 Year
  Sex: Female
  Weight: 75 kg

DRUGS (5)
  1. ATORVASTATIN CALCIUM [Suspect]
     Indication: HYPERCHOLESTEROLAEMIA
     Dosage: 40 mg, 1x/day
     Dates: start: 20120901, end: 20120908
  2. AMLODIPINE/ HYDROCHLOROTHIAZIDE/ VALSARTAN [Concomitant]
     Dosage: UNK
  3. CARBASALATE CALCIUM [Concomitant]
     Dosage: UNK
  4. METOPROLOL [Concomitant]
     Dosage: UNK
  5. OMEPRAZOL [Concomitant]
     Dosage: UNK

REACTIONS (7)
  - Retinal degeneration [Recovered/Resolved with Sequelae]
  - Cough [Recovered/Resolved with Sequelae]
  - Abdominal pain upper [Recovered/Resolved with Sequelae]
  - Influenza like illness [Recovered/Resolved with Sequelae]
  - Myalgia [Recovered/Resolved with Sequelae]
  - Fatigue [Not Recovered/Not Resolved]
  - Nausea [Recovered/Resolved with Sequelae]
